FAERS Safety Report 4717950-9 (Version None)
Quarter: 2005Q3

REPORT INFORMATION
  Report Type: 
  Country: None (occurrence: None)
  Receive Date: 20050719
  Receipt Date: 20050719
  Transmission Date: 20060218
  Serious: Yes (Life-Threatening, Hospitalization)
  Sender: FDA-Public Use
  Company Number: None

PATIENT
  Age: 11 Day
  Sex: Male
  Weight: 4.0824 kg

DRUGS (1)
  1. ACETAMINOPHEN INFANT DROPS 160 MG/1.6 ML [Suspect]
     Indication: ANALGESIC EFFECT
     Dates: start: 20050601

REACTIONS (2)
  - DRUG DISPENSING ERROR [None]
  - DRUG TOXICITY [None]
